FAERS Safety Report 5416675-4 (Version None)
Quarter: 2007Q3

REPORT INFORMATION
  Report Type: 
  Country: None (occurrence: None)
  Receive Date: 20070814
  Receipt Date: 20070518
  Transmission Date: 20080115
  Serious: Yes (Hospitalization)
  Sender: FDA-Public Use
  Company Number: JPKYO-S-20070027

PATIENT
  Age: 53 Year
  Sex: Female

DRUGS (6)
  1. NAVELBINE [Suspect]
     Indication: BREAST CANCER RECURRENT
     Dosage: 22 MG/M2 IV
     Route: 042
     Dates: start: 20070312, end: 20070409
  2. NASEA [Concomitant]
  3. CEFAMEZIN [Concomitant]
  4. FLUMARIN [Concomitant]
  5. MORPHINE HYDROCHLORIDE [Concomitant]
  6. MODACIN [Concomitant]

REACTIONS (5)
  - JAUNDICE [None]
  - LEUKOPENIA [None]
  - METASTASES TO LIVER [None]
  - NEUTROPENIA [None]
  - PNEUMONIA ASPIRATION [None]
